FAERS Safety Report 8813942 (Version 2)
Quarter: 2015Q2

REPORT INFORMATION
  Report Type: Report from Study
  Country: US (occurrence: US)
  Receive Date: 20120928
  Receipt Date: 20150407
  Transmission Date: 20150821
  Serious: Yes (Death)
  Sender: FDA-Public Use
  Company Number: US-ROCHE-1125848

PATIENT
  Age: 94 Year
  Sex: Male
  Weight: 143 kg

DRUGS (15)
  1. MAGNESIUM SULPHATE [Concomitant]
     Active Substance: MAGNESIUM SULFATE
     Route: 042
  2. ROCEPHIN [Concomitant]
     Active Substance: CEFTRIAXONE SODIUM
     Route: 065
  3. BENADRYL [Concomitant]
     Active Substance: DIPHENHYDRAMINE HYDROCHLORIDE
     Route: 042
  4. PLATINOL [Concomitant]
     Active Substance: CISPLATIN
     Route: 042
  5. LASIX [Concomitant]
     Active Substance: FUROSEMIDE
     Route: 042
  6. HERCEPTIN [Suspect]
     Active Substance: TRASTUZUMAB
     Indication: URETERIC CANCER
  7. HERCEPTIN [Suspect]
     Active Substance: TRASTUZUMAB
     Indication: BLADDER CANCER
     Route: 042
     Dates: start: 20070716
  8. TYLENOL [Concomitant]
     Active Substance: ACETAMINOPHEN
     Route: 048
  9. NEULASTA [Concomitant]
     Active Substance: PEGFILGRASTIM
     Route: 058
  10. KYTRIL [Concomitant]
     Active Substance: GRANISETRON HYDROCHLORIDE
     Route: 065
  11. ALOXI [Concomitant]
     Active Substance: PALONOSETRON HYDROCHLORIDE
     Route: 042
  12. MANNITOL. [Concomitant]
     Active Substance: MANNITOL
     Route: 042
  13. DECADRON [Concomitant]
     Active Substance: DEXAMETHASONE
     Route: 042
  14. ARANESP [Concomitant]
     Active Substance: DARBEPOETIN ALFA
     Route: 042
  15. CARBOPLATIN. [Concomitant]
     Active Substance: CARBOPLATIN

REACTIONS (5)
  - Asthenia [Unknown]
  - Death [Fatal]
  - Urinary tract infection [Unknown]
  - Off label use [Unknown]
  - Faecal incontinence [Unknown]

NARRATIVE: CASE EVENT DATE: 20070923
